FAERS Safety Report 19313195 (Version 1)
Quarter: 2021Q2

REPORT INFORMATION
  Report Type: Spontaneous
  Country: GB (occurrence: GB)
  Receive Date: 20210527
  Receipt Date: 20210527
  Transmission Date: 20210717
  Serious: Yes (Other)
  Sender: FDA-Public Use
  Company Number: GB-ORGANON-O2105GBR002139

PATIENT
  Age: 18 Year
  Sex: Male
  Weight: 68 kg

DRUGS (1)
  1. BETAMETHASONE VALERATE. [Suspect]
     Active Substance: BETAMETHASONE VALERATE
     Indication: ILL-DEFINED DISORDER
     Dosage: UNK
     Route: 061

REACTIONS (1)
  - Adverse drug reaction [Not Recovered/Not Resolved]
